FAERS Safety Report 11583721 (Version 1)
Quarter: 2015Q4

REPORT INFORMATION
  Report Type: Spontaneous
  Country: US (occurrence: US)
  Receive Date: 20151001
  Receipt Date: 20151001
  Transmission Date: 20160304
  Serious: Yes (Other)
  Sender: FDA-Public Use
  Company Number: US-BAYER-2015-425030

PATIENT
  Age: 43 Year
  Sex: Female

DRUGS (1)
  1. MIRENA [Suspect]
     Active Substance: LEVONORGESTREL
     Indication: MENORRHAGIA
     Dosage: 20 MCG/24HR, CONT
     Route: 015
     Dates: start: 20150601, end: 20150717

REACTIONS (5)
  - Device difficult to use [None]
  - Off label use of device [None]
  - Uterine haemorrhage [None]
  - Medical device discomfort [None]
  - Genital haemorrhage [None]

NARRATIVE: CASE EVENT DATE: 2015
